FAERS Safety Report 22781107 (Version 2)
Quarter: 2023Q4

REPORT INFORMATION
  Report Type: Spontaneous
  Country: JP (occurrence: JP)
  Receive Date: 20230803
  Receipt Date: 20231025
  Transmission Date: 20240110
  Serious: Yes (Other)
  Sender: FDA-Public Use
  Company Number: JP-TAIHO-2023-006188

PATIENT
  Age: 70 Year
  Sex: Male

DRUGS (1)
  1. ABRAXANE [Suspect]
     Active Substance: PACLITAXEL
     Indication: Lung neoplasm malignant
     Dosage: NI
     Route: 041

REACTIONS (4)
  - Scleroderma-like reaction [Unknown]
  - Oedema [Unknown]
  - Tooth discolouration [Unknown]
  - Elephantiasis [Unknown]

NARRATIVE: CASE EVENT DATE: 20230101
